FAERS Safety Report 12696034 (Version 1)
Quarter: 2016Q3

REPORT INFORMATION
  Report Type: Spontaneous
  Country: US (occurrence: US)
  Receive Date: 20160829
  Receipt Date: 20160829
  Transmission Date: 20161109
  Serious: Yes (Hospitalization)
  Sender: FDA-Public Use
  Company Number: US-RELYPSA-RLY2016002042

PATIENT
  Age: 63 Year
  Sex: Male

DRUGS (22)
  1. METOPROLOL SUCCINATE. [Concomitant]
     Active Substance: METOPROLOL SUCCINATE
  2. FOLIC ACID. [Concomitant]
     Active Substance: FOLIC ACID
  3. HYDRALAZINE HCL [Concomitant]
     Active Substance: HYDRALAZINE HYDROCHLORIDE
  4. LYRICA [Concomitant]
     Active Substance: PREGABALIN
  5. MULTIVITAMIN                       /00097801/ [Concomitant]
     Active Substance: VITAMINS
  6. PREVACID [Concomitant]
     Active Substance: LANSOPRAZOLE
  7. VELTASSA [Suspect]
     Active Substance: PATIROMER
     Indication: HYPERKALAEMIA
     Dosage: 25.2 G, QD
     Route: 048
  8. BUMEX [Concomitant]
     Active Substance: BUMETANIDE
  9. COPPER [Concomitant]
     Active Substance: COPPER
  10. FLOMAX [Concomitant]
     Active Substance: TAMSULOSIN HYDROCHLORIDE
  11. SODIUM BICARBONATE. [Concomitant]
     Active Substance: SODIUM BICARBONATE
  12. VITAMIN C [Concomitant]
     Active Substance: ASCORBIC ACID
  13. ZINC [Concomitant]
     Active Substance: ZINC\ZINC CHLORIDE
  14. LIPITOR [Concomitant]
     Active Substance: ATORVASTATIN CALCIUM
  15. MAGNESIUM OXIDE. [Concomitant]
     Active Substance: MAGNESIUM OXIDE
  16. MAGNESIUM SULFATE. [Concomitant]
     Active Substance: MAGNESIUM SULFATE
  17. PANCRELIPASE. [Concomitant]
     Active Substance: PANCRELIPASE
  18. ALLOPURINOL. [Concomitant]
     Active Substance: ALLOPURINOL
  19. CALCIUM [Concomitant]
     Active Substance: CALCIUM
  20. METOLAZONE. [Concomitant]
     Active Substance: METOLAZONE
  21. CALCITRIOL. [Concomitant]
     Active Substance: CALCITRIOL
  22. VITAMIN D3 [Concomitant]
     Active Substance: CHOLECALCIFEROL

REACTIONS (1)
  - Pneumonia [Unknown]

NARRATIVE: CASE EVENT DATE: 20160730
